FAERS Safety Report 5930354-6 (Version None)
Quarter: 2008Q4

REPORT INFORMATION
  Report Type: 
  Country: None (occurrence: None)
  Receive Date: 20081023
  Receipt Date: 20081015
  Transmission Date: 20090506
  Serious: Yes (Other)
  Sender: FDA-Public Use
  Company Number: 2008SP020939

PATIENT
  Age: 45 Year
  Sex: Male

DRUGS (1)
  1. CELESTONE [Suspect]
     Indication: GOUT
     Dosage: IV
     Route: 042
     Dates: start: 20080901

REACTIONS (1)
  - STEVENS-JOHNSON SYNDROME [None]
